FAERS Safety Report 21767845 (Version 1)
Quarter: 2022Q4

REPORT INFORMATION
  Report Type: Spontaneous
  Country: PL (occurrence: PL)
  Receive Date: 20221222
  Receipt Date: 20221222
  Transmission Date: 20230113
  Serious: Yes (Life-Threatening, Hospitalization)
  Sender: FDA-Public Use
  Company Number: PL-UPSHER-SMITH LABORATORIES, LLC-2022USL00980

PATIENT
  Sex: Male

DRUGS (1)
  1. TESTOSTERONE [Suspect]
     Active Substance: TESTOSTERONE
     Dosage: EVERY FORTNIGHT [2 WEEK INTERVALS]

REACTIONS (3)
  - Intentional self-injury [Recovered/Resolved]
  - Substance abuse [Recovered/Resolved]
  - Suicide attempt [Recovered/Resolved]
